FAERS Safety Report 23056860 (Version 1)
Quarter: 2023Q4

REPORT INFORMATION
  Report Type: Spontaneous
  Country: US (occurrence: US)
  Receive Date: 20231012
  Receipt Date: 20231012
  Transmission Date: 20240109
  Serious: No
  Sender: FDA-Public Use
  Company Number: US-AMGEN-USASP2023180655

PATIENT
  Sex: Female

DRUGS (1)
  1. REPATHA [Suspect]
     Active Substance: EVOLOCUMAB
     Indication: Inflammation
     Dosage: 140 MILLIGRAM, Q2WK
     Route: 058
     Dates: start: 20230926

REACTIONS (1)
  - Abdominal discomfort [Not Recovered/Not Resolved]
